FAERS Safety Report 4993452-X (Version None)
Quarter: 2006Q2

REPORT INFORMATION
  Report Type: 
  Country: None (occurrence: None)
  Receive Date: 20060504
  Receipt Date: 20060504
  Transmission Date: 20061013
  Serious: Yes (Hospitalization)
  Sender: FDA-Public Use
  Company Number: None

PATIENT
  Age: 40 Year
  Sex: Female
  Weight: 70 kg

DRUGS (1)
  1. SOLU-MEDROL [Suspect]
     Indication: BONE MARROW TRANSPLANT
     Dosage: 70 MG EVERY 12 HOURS IV
     Route: 042

REACTIONS (4)
  - ABNORMAL BEHAVIOUR [None]
  - HALLUCINATION [None]
  - MYOPATHY STEROID [None]
  - PSYCHOTIC DISORDER [None]
